FAERS Safety Report 7646429-X (Version None)
Quarter: 2011Q3

REPORT INFORMATION
  Report Type: 
  Country: None (occurrence: None)
  Receive Date: 20110801
  Receipt Date: 20110719
  Transmission Date: 20111222
  Serious: Yes (Hospitalization, Other)
  Sender: FDA-Public Use
  Company Number: US-CELGENEUS-163-21880-11032790

PATIENT
  Sex: Female

DRUGS (14)
  1. REVLIMID [Suspect]
     Dosage: 5 MILLIGRAM
     Route: 048
     Dates: start: 20110125, end: 20110401
  2. POTASSIUM CHLORIDE [Concomitant]
     Dosage: 20 MILLIEQUIVALENTS
     Route: 065
  3. PHENERGAN HCL [Concomitant]
     Indication: NAUSEA
     Dosage: 25 MILLIGRAM
     Route: 065
  4. SPIRIVA [Concomitant]
     Route: 065
  5. GABAPENTIN [Concomitant]
     Dosage: 300 MILLIGRAM
     Route: 065
  6. REVLIMID [Suspect]
     Indication: MULTIPLE MYELOMA
     Route: 048
     Dates: start: 20101029
  7. AREDIA [Concomitant]
     Route: 065
  8. FLUCONAZOLE [Concomitant]
     Dosage: 50 MILLIGRAM
     Route: 048
  9. LEXAPRO [Concomitant]
     Dosage: 10 MILLIGRAM
     Route: 065
  10. OXYCODONE HCL AND ACETAMINOPHEN [Concomitant]
     Dosage: 1 TABLET
     Route: 048
  11. NEXIUM [Concomitant]
     Dosage: 40 MILLIGRAM
     Route: 065
  12. DURAGESIC-100 [Concomitant]
     Dosage: 25 MICROGRAM
     Route: 065
  13. DECADRON [Concomitant]
     Route: 065
     Dates: start: 20101029
  14. DECADRON [Concomitant]
     Dosage: 40 MILLIGRAM
     Route: 065

REACTIONS (6)
  - VOMITING [None]
  - PATHOLOGICAL FRACTURE [None]
  - DEHYDRATION [None]
  - PNEUMONIA [None]
  - NAUSEA [None]
  - FATIGUE [None]
